FAERS Safety Report 10028523 (Version 3)
Quarter: 2014Q2

REPORT INFORMATION
  Report Type: Spontaneous
  Country: US (occurrence: US)
  Receive Date: 20140321
  Receipt Date: 20140410
  Transmission Date: 20141212
  Serious: No
  Sender: FDA-Public Use
  Company Number: US-PFIZER INC-2014044778

PATIENT
  Age: 60 Year
  Sex: Female
  Weight: 104 kg

DRUGS (3)
  1. NEURONTIN [Suspect]
     Indication: CONVULSION
     Dosage: 300 MG, 3X/DAY
     Route: 048
     Dates: start: 1994
  2. MOBIC [Concomitant]
     Indication: ARTHRALGIA
     Dosage: 15 MG, 1X/DAY
  3. ATENOLOL [Concomitant]
     Indication: HYPERTENSION
     Dosage: 100 MG, 1X/DAY

REACTIONS (2)
  - Insomnia [Unknown]
  - Medication residue present [Unknown]
